FAERS Safety Report 9293118 (Version 1)
Quarter: 2013Q2

REPORT INFORMATION
  Report Type: Spontaneous
  Country: US (occurrence: None)
  Receive Date: 20130514
  Receipt Date: 20130514
  Transmission Date: 20140414
  Serious: Yes (Other)
  Sender: FDA-Public Use
  Company Number: 1304-473

PATIENT
  Age: 88 Year
  Sex: Female

DRUGS (1)
  1. EYLEA [Suspect]
     Indication: AGE-RELATED MACULAR DEGENERATION
     Dosage: 8 WK
     Route: 031
     Dates: start: 20120525, end: 20130330

REACTIONS (1)
  - Endophthalmitis [None]
